FAERS Safety Report 14619280 (Version 1)
Quarter: 2018Q1

REPORT INFORMATION
  Report Type: Spontaneous
  Country: US (occurrence: US)
  Receive Date: 20180309
  Receipt Date: 20180309
  Transmission Date: 20180509
  Serious: Yes (Death)
  Sender: FDA-Public Use
  Company Number: None

PATIENT
  Age: 58 Year
  Sex: Male

DRUGS (1)
  1. CAPECITABINE. [Suspect]
     Active Substance: CAPECITABINE
     Indication: GASTROENTEROPANCREATIC NEUROENDOCRINE TUMOUR DISEASE
     Dosage: 500MG 3 TABS AM 2 TABS PM BY MOUTH
     Route: 048
     Dates: start: 20171006, end: 20180221

REACTIONS (1)
  - Death [None]

NARRATIVE: CASE EVENT DATE: 20180308
